FAERS Safety Report 7636023-9 (Version None)
Quarter: 2011Q3

REPORT INFORMATION
  Report Type: 
  Country: None (occurrence: None)
  Receive Date: 20110726
  Receipt Date: 20110714
  Transmission Date: 20111222
  Serious: Yes (Other)
  Sender: FDA-Public Use
  Company Number: GB-ROCHE-789957

PATIENT
  Sex: Female

DRUGS (1)
  1. TRASTUZUMAB [Suspect]
     Route: 065
     Dates: start: 20110301

REACTIONS (3)
  - INCONTINENCE [None]
  - POLLAKIURIA [None]
  - ARTHRALGIA [None]
